FAERS Safety Report 8172439-2 (Version None)
Quarter: 2012Q1

REPORT INFORMATION
  Report Type: 
  Country: None (occurrence: None)
  Receive Date: 20120224
  Receipt Date: 20120224
  Transmission Date: 20120608
  Serious: Yes (Hospitalization)
  Sender: FDA-Public Use
  Company Number: None

PATIENT
  Sex: Male
  Weight: 107.2 kg

DRUGS (5)
  1. CYCLOPHOSPHAMIDE [Suspect]
     Dosage: 1650 MG
  2. DOXORUBICIN HCL [Suspect]
     Dosage: 110 MG
  3. VINCRISTINE SULFATE [Suspect]
     Dosage: 2 MG
  4. RITUXIMAB (MOAB C2B8 ANTI CD20, CHIMERIC) [Concomitant]
     Dosage: 825 MG
  5. PREDNISONE TAB [Suspect]
     Dosage: 90 MG

REACTIONS (5)
  - VOMITING [None]
  - NAUSEA [None]
  - ABDOMINAL PAIN [None]
  - SMALL INTESTINAL OBSTRUCTION [None]
  - MASS [None]
